FAERS Safety Report 19738589 (Version 2)
Quarter: 2021Q4

REPORT INFORMATION
  Report Type: Report from Study
  Country: DE (occurrence: DE)
  Receive Date: 20210823
  Receipt Date: 20211025
  Transmission Date: 20220304
  Serious: Yes (Death, Life-Threatening, Other)
  Sender: FDA-Public Use
  Company Number: DE-002147023-NVSC2020DE183977

PATIENT
  Age: 55 Year
  Sex: Female
  Weight: 75 kg

DRUGS (5)
  1. VINORELBINE [Suspect]
     Active Substance: VINORELBINE TARTRATE
     Indication: Product used for unknown indication
     Dosage: UNK
     Route: 065
  2. LETROZOLE [Suspect]
     Active Substance: LETROZOLE
     Indication: Breast cancer metastatic
     Dosage: 2.5 MG, QD
     Route: 048
     Dates: start: 20190227
  3. LETROZOLE [Suspect]
     Active Substance: LETROZOLE
     Dosage: 2.5 MG, QD
     Route: 048
     Dates: start: 20190715
  4. KISQALI [Suspect]
     Active Substance: RIBOCICLIB
     Indication: Breast cancer metastatic
     Dosage: 600 MILLIGRAM
     Route: 048
     Dates: start: 20190227, end: 20190714
  5. KISQALI [Suspect]
     Active Substance: RIBOCICLIB
     Dosage: 400 MILLIGRAM
     Route: 048
     Dates: start: 20190715, end: 20200602

REACTIONS (2)
  - Ileus [Fatal]
  - Aspiration [Fatal]

NARRATIVE: CASE EVENT DATE: 20200620
